FAERS Safety Report 25944892 (Version 1)
Quarter: 2025Q4

REPORT INFORMATION
  Report Type: Spontaneous
  Country: US (occurrence: US)
  Receive Date: 20251021
  Receipt Date: 20251021
  Transmission Date: 20260117
  Serious: No
  Sender: Phathom Pharmaceuticals
  Company Number: US-PHATHOM PHARMACEUTICALS INC.-2025PHT02316

PATIENT
  Age: 80 Year
  Sex: Female

DRUGS (9)
  1. VOQUEZNA [Suspect]
     Active Substance: VONOPRAZAN FUMARATE
     Dosage: UNK
     Route: 048
     Dates: start: 20250820
  2. HYDROXYCHLOROQUINE [Concomitant]
     Active Substance: HYDROXYCHLOROQUINE
  3. MINOXIDIL [Concomitant]
     Active Substance: MINOXIDIL
  4. DUTASTERIDE [Concomitant]
     Active Substance: DUTASTERIDE
  5. PROGESTERONE [Concomitant]
     Active Substance: PROGESTERONE
  6. ESTRADIOL [Concomitant]
     Active Substance: ESTRADIOL
  7. LEVOTHYROXINE [Concomitant]
     Active Substance: LEVOTHYROXINE
  8. CLONAZEPAM [Concomitant]
     Active Substance: CLONAZEPAM
  9. SYNTHROID [Concomitant]
     Active Substance: LEVOTHYROXINE SODIUM

REACTIONS (2)
  - Hyperhidrosis [Unknown]
  - Nausea [Unknown]

NARRATIVE: CASE EVENT DATE: 20250820
